FAERS Safety Report 10441817 (Version 2)
Quarter: 2014Q3

REPORT INFORMATION
  Report Type: Spontaneous
  Country: US (occurrence: US)
  Receive Date: 20140908
  Receipt Date: 20140912
  Transmission Date: 20150326
  Serious: Yes (Other)
  Sender: FDA-Public Use
  Company Number: US-ASTRAZENECA-2014SE66750

PATIENT
  Sex: Female

DRUGS (1)
  1. NEXIUM 24HR [Suspect]
     Active Substance: ESOMEPRAZOLE MAGNESIUM
     Indication: DIVERTICULITIS
     Dosage: 44.6 MG (BY TAKING TWO 22.3 MG TOGETHER), UNKNOWN FREQUENCY
     Route: 048
     Dates: start: 20140901

REACTIONS (3)
  - Brain oedema [Unknown]
  - Head discomfort [Unknown]
  - Intentional product misuse [Unknown]

NARRATIVE: CASE EVENT DATE: 20140901
